FAERS Safety Report 6998617-3 (Version None)
Quarter: 2010Q3

REPORT INFORMATION
  Report Type: 
  Country: None (occurrence: None)
  Receive Date: 20100920
  Receipt Date: 20100105
  Transmission Date: 20110219
  Serious: No
  Sender: FDA-Public Use
  Company Number: US-ASTRAZENECA-2009UW21672

PATIENT
  Age: 44 Year
  Sex: Female
  Weight: 169.6 kg

DRUGS (6)
  1. SEROQUEL [Suspect]
     Indication: DEPRESSION
     Dosage: 25 MG MORNING,25 MG AFTERNOON AND 200 MG BEDTIME
     Route: 048
     Dates: start: 20040101, end: 20060901
  2. SEROQUEL [Suspect]
     Indication: BIPOLAR DISORDER
     Dosage: 25 MG MORNING,25 MG AFTERNOON AND 200 MG BEDTIME
     Route: 048
     Dates: start: 20040101, end: 20060901
  3. LIPITOR [Concomitant]
     Indication: BLOOD CHOLESTEROL INCREASED
  4. ABILIFY [Concomitant]
     Indication: BIPOLAR DISORDER
     Dates: start: 20061101, end: 20070201
  5. ZOLOFT [Concomitant]
     Dates: start: 20090301, end: 20090401
  6. PHENTERMINE [Concomitant]
     Indication: OBESITY

REACTIONS (4)
  - BLOOD CHOLESTEROL INCREASED [None]
  - OBESITY [None]
  - TYPE 1 DIABETES MELLITUS [None]
  - WEIGHT INCREASED [None]
